FAERS Safety Report 10550518 (Version 1)
Quarter: 2014Q4

REPORT INFORMATION
  Report Type: Spontaneous
  Country: US (occurrence: US)
  Receive Date: 20141029
  Receipt Date: 20141029
  Transmission Date: 20150529
  Serious: No
  Sender: FDA-Public Use
  Company Number: US-TEVA-504288USA

PATIENT
  Sex: Male
  Weight: 95.34 kg

DRUGS (2)
  1. PROVIGIL [Suspect]
     Active Substance: MODAFINIL
     Indication: SOMNOLENCE
     Dates: start: 2009, end: 2011
  2. PAXIL [Concomitant]
     Active Substance: PAROXETINE HYDROCHLORIDE
     Indication: DEPRESSION

REACTIONS (6)
  - Therapeutic response unexpected [Recovered/Resolved]
  - Movement disorder [Not Recovered/Not Resolved]
  - Product use issue [Unknown]
  - Hypervigilance [Recovered/Resolved]
  - Intelligence increased [Recovered/Resolved]
  - Fatigue [Not Recovered/Not Resolved]

NARRATIVE: CASE EVENT DATE: 2009
